FAERS Safety Report 25533311 (Version 1)
Quarter: 2025Q3

REPORT INFORMATION
  Report Type: Report from Study
  Country: GB (occurrence: GB)
  Receive Date: 20250709
  Receipt Date: 20250709
  Transmission Date: 20251020
  Serious: Yes (Hospitalization, Other)
  Sender: ABBVIE
  Company Number: GB-ABBVIE-6357456

PATIENT
  Sex: Male

DRUGS (2)
  1. CARBIDOPA\LEVODOPA [Suspect]
     Active Substance: CARBIDOPA\LEVODOPA
     Indication: Parkinson^s disease
     Route: 050
  2. CARBIDOPA\LEVODOPA [Suspect]
     Active Substance: CARBIDOPA\LEVODOPA

REACTIONS (7)
  - Back pain [Unknown]
  - Fall [Unknown]
  - Malaise [Unknown]
  - Hypophagia [Unknown]
  - Device-device incompatibility [Unknown]
  - Pneumonia [Unknown]
  - Pneumothorax [Unknown]
